FAERS Safety Report 10287923 (Version 3)
Quarter: 2015Q3

REPORT INFORMATION
  Report Type: Spontaneous
  Country: US (occurrence: US)
  Receive Date: 20140709
  Receipt Date: 20150814
  Transmission Date: 20151125
  Serious: No
  Sender: FDA-Public Use
  Company Number: US-GILEAD-2013-0080228

PATIENT
  Age: 58 Year
  Sex: Male

DRUGS (3)
  1. LETAIRIS [Suspect]
     Active Substance: AMBRISENTAN
     Indication: PULMONARY ARTERIAL HYPERTENSION
     Dosage: 5 MG, QD
     Route: 048
     Dates: start: 20110818
  2. REVATIO [Concomitant]
     Active Substance: SILDENAFIL CITRATE
  3. EPOPROSTENOL. [Concomitant]
     Active Substance: EPOPROSTENOL

REACTIONS (1)
  - Depression [Unknown]
